FAERS Safety Report 5696795-X (Version None)
Quarter: 2008Q2

REPORT INFORMATION
  Report Type: 
  Country: None (occurrence: None)
  Receive Date: 20080408
  Receipt Date: 20070220
  Transmission Date: 20081010
  Serious: Yes (Other)
  Sender: FDA-Public Use
  Company Number: US-BAYER-US-2006-033500

PATIENT
  Age: 42 Year
  Sex: Female

DRUGS (1)
  1. YASMIN [Suspect]
     Indication: MENSTRUATION IRREGULAR
     Route: 048
     Dates: start: 20060701, end: 20061015

REACTIONS (4)
  - CHOKING SENSATION [None]
  - ERYTHEMA NODOSUM [None]
  - RASH GENERALISED [None]
  - THROAT TIGHTNESS [None]
